FAERS Safety Report 23446298 (Version 1)
Quarter: 2024Q1

REPORT INFORMATION
  Report Type: Spontaneous
  Country: CZ (occurrence: CZ)
  Receive Date: 20240126
  Receipt Date: 20240126
  Transmission Date: 20240410
  Serious: Yes (Hospitalization)
  Sender: FDA-Public Use
  Company Number: None

PATIENT
  Age: 35 Year
  Sex: Male

DRUGS (6)
  1. ACETAMINOPHEN\ASPIRIN\CAFFEINE [Suspect]
     Active Substance: ACETAMINOPHEN\ASPIRIN\CAFFEINE
     Dosage: TOTAL DOSE OF 21,7 MG/KG
     Route: 048
     Dates: start: 20211206, end: 20211206
  2. NAPROXEN SODIUM [Suspect]
     Active Substance: NAPROXEN\NAPROXEN SODIUM
     Dosage: TOTAL DOSE OF 21,7 MG/KG
     Route: 048
     Dates: start: 20211206, end: 20211206
  3. DIOSMIN\HESPERIDIN [Suspect]
     Active Substance: DIOSMIN\HESPERIDIN
     Route: 048
     Dates: start: 20211206, end: 20211206
  4. PROPYPHENAZONE [Suspect]
     Active Substance: PROPYPHENAZONE
     Dosage: UNK
     Route: 048
     Dates: start: 20211206, end: 20211206
  5. CODEINE PHOSPHATE [Suspect]
     Active Substance: CODEINE PHOSPHATE
     Route: 048
     Dates: start: 20211206, end: 20211206
  6. PROGESTERONE [Suspect]
     Active Substance: PROGESTERONE
     Route: 048
     Dates: start: 20211206, end: 20211206

REACTIONS (2)
  - Intentional product misuse [None]
  - Suicide attempt [None]

NARRATIVE: CASE EVENT DATE: 20211206
